FAERS Safety Report 8170803-9 (Version None)
Quarter: 2012Q1

REPORT INFORMATION
  Report Type: 
  Country: None (occurrence: None)
  Receive Date: 20120228
  Receipt Date: 20120217
  Transmission Date: 20120608
  Serious: Yes (Hospitalization)
  Sender: FDA-Public Use
  Company Number: MX-SANOFI-AVENTIS-2012SA012836

PATIENT
  Age: 71 Year
  Sex: Female

DRUGS (1)
  1. CLOPIDOGREL BISULFATE [Suspect]
     Indication: DIABETES MELLITUS
     Route: 048
     Dates: start: 20120204, end: 20120204

REACTIONS (1)
  - BLOOD GLUCOSE INCREASED [None]
